FAERS Safety Report 11031010 (Version 3)
Quarter: 2016Q2

REPORT INFORMATION
  Report Type: Spontaneous
  Country: US (occurrence: US)
  Receive Date: 20150415
  Receipt Date: 20160623
  Transmission Date: 20160815
  Serious: Yes (Hospitalization, Other)
  Sender: FDA-Public Use
  Company Number: US-PFIZER INC-2015121647

PATIENT
  Age: 68 Year
  Sex: Female
  Weight: 66 kg

DRUGS (18)
  1. LETAIRIS [Concomitant]
     Active Substance: AMBRISENTAN
     Indication: HYPERTENSION
     Dosage: 10 MG, 1X/DAY
  2. LORATADINE. [Concomitant]
     Active Substance: LORATADINE
     Indication: HYPERSENSITIVITY
     Dosage: 10 MG, 1X/DAY
  3. WARFARIN [Concomitant]
     Active Substance: WARFARIN
     Indication: ANTICOAGULANT THERAPY
  4. REVATIO [Suspect]
     Active Substance: SILDENAFIL CITRATE
     Indication: PULMONARY HYPERTENSION
     Dosage: 20 MG, 3X/DAY (1 TAB)
     Route: 048
     Dates: start: 20081205
  5. FUROSEMIDE. [Concomitant]
     Active Substance: FUROSEMIDE
     Indication: CARDIAC FAILURE CONGESTIVE
     Dosage: 80 MG, DAILY
  6. SPIRONOLACTONE. [Concomitant]
     Active Substance: SPIRONOLACTONE
     Indication: CARDIAC FAILURE
  7. GLUCOSAMINE CHONDROITIN [Concomitant]
     Active Substance: CHONDROITIN SULFATE (BOVINE)\GLUCOSAMINE HYDROCHLORIDE
     Dosage: UNK, 1X/DAY
  8. CALCIUM 500+D [Concomitant]
     Active Substance: CALCIUM\VITAMIN D
     Dosage: 1 DF, 2X/DAY
  9. PRESERVISION [Concomitant]
     Active Substance: MINERALS\VITAMINS
     Indication: MACULAR DEGENERATION
     Dosage: 2 DF, DAILY
  10. SINGULAIR [Concomitant]
     Active Substance: MONTELUKAST SODIUM
     Indication: ASTHMA
     Dosage: 10 MG, 1X/DAY
  11. ACTONEL [Concomitant]
     Active Substance: RISEDRONATE SODIUM
     Indication: OSTEOPOROSIS PROPHYLAXIS
     Dosage: 35 MG, WEEKLY (USUALLY ON SUNDAY)
  12. WARFARIN [Concomitant]
     Active Substance: WARFARIN
     Indication: ATRIAL FIBRILLATION
     Dosage: 6.5MG FOR FIVE DAYS. MONDAY AND THURS 7MG
  13. TYVASO [Concomitant]
     Active Substance: TREPROSTINIL
     Indication: PULMONARY HYPERTENSION
     Dosage: ONE VIAL 1.74MG, FOUR TIMES A DAY, NINE PUFFS EACH TIME
  14. BUDESONIDE. [Concomitant]
     Active Substance: BUDESONIDE
     Indication: ASTHMA
     Dosage: ONE VIAL 2ML, TWICE A DAY BEGINNING AND NIGHT
  15. DIGOXIN. [Concomitant]
     Active Substance: DIGOXIN
     Indication: CARDIAC FAILURE
     Dosage: 0.125 MG, 1X/DAY
  16. VALSARTAN. [Concomitant]
     Active Substance: VALSARTAN
     Indication: BLOOD PRESSURE INCREASED
     Dosage: 40 MG, 1X/DAY
  17. LEVALBUTEROL. [Concomitant]
     Active Substance: LEVALBUTEROL
     Indication: ASTHMA
     Dosage: 1.25MG/3ML, THREE TIMES A DAY
  18. SPIRONOLACTONE. [Concomitant]
     Active Substance: SPIRONOLACTONE
     Indication: FLUID RETENTION
     Dosage: 50 MG, 1X/DAY

REACTIONS (11)
  - Dyspnoea [Unknown]
  - Fluid retention [Unknown]
  - Pneumonia [Unknown]
  - Mitral valve disease [Unknown]
  - Syncope [Unknown]
  - Tooth disorder [Unknown]
  - Influenza B virus test positive [Unknown]
  - Cardiac failure congestive [Unknown]
  - Sinus congestion [Recovering/Resolving]
  - Cough [Unknown]
  - Asthma [Unknown]

NARRATIVE: CASE EVENT DATE: 2015
